FAERS Safety Report 10691209 (Version 1)
Quarter: 2015Q1

REPORT INFORMATION
  Report Type: Report from Study
  Country: TN (occurrence: TN)
  Receive Date: 20150105
  Receipt Date: 20150105
  Transmission Date: 20150720
  Serious: Yes (Death)
  Sender: FDA-Public Use
  Company Number: TN-SA-2014SA179642

PATIENT
  Age: 80 Year
  Sex: Female

DRUGS (8)
  1. PLAVIX [Suspect]
     Active Substance: CLOPIDOGREL BISULFATE
     Indication: MYOCARDIAL INFARCTION
     Route: 048
     Dates: start: 20140429, end: 20141214
  2. COVERSYL [Concomitant]
     Active Substance: PERINDOPRIL
     Route: 048
     Dates: end: 20141214
  3. CORVASAL [Concomitant]
     Active Substance: LINSIDOMINE
     Route: 048
     Dates: end: 20141214
  4. LASILIX [Concomitant]
     Active Substance: FUROSEMIDE
     Route: 048
     Dates: end: 20141214
  5. ISOPHANE INSULIN [Concomitant]
     Active Substance: INSULIN NOS
  6. HYPOTEN [Concomitant]
  7. FAMODINE [Concomitant]
  8. ASPEGIC [Concomitant]
     Active Substance: ASPIRIN DL-LYSINE
     Route: 048
     Dates: end: 20141214

REACTIONS (1)
  - Breast cancer [Fatal]

NARRATIVE: CASE EVENT DATE: 2014
